FAERS Safety Report 4867973-4 (Version None)
Quarter: 2005Q4

REPORT INFORMATION
  Report Type: 
  Country: None (occurrence: None)
  Receive Date: 20051227
  Receipt Date: 20051216
  Transmission Date: 20060501
  Serious: Yes (Other)
  Sender: FDA-Public Use
  Company Number: BE-JNJFOC-20051105504

PATIENT
  Age: 41 Year
  Sex: Female
  Weight: 104 kg

DRUGS (2)
  1. TOPAMAX [Suspect]
     Indication: FACIAL NEURALGIA
     Dosage: 125 MG, IN 1 DAY, ORAL
     Route: 048
     Dates: start: 20041109, end: 20051207
  2. FLIXONASE (FLUTICASONE PROPIONATE) [Concomitant]

REACTIONS (5)
  - BRADYCARDIA [None]
  - EXTRASYSTOLES [None]
  - FATIGUE [None]
  - PALPITATIONS [None]
  - VENTRICULAR EXTRASYSTOLES [None]
